FAERS Safety Report 10041535 (Version 1)
Quarter: 2014Q1

REPORT INFORMATION
  Report Type: Spontaneous
  Country: BR (occurrence: BR)
  Receive Date: 20140327
  Receipt Date: 20140327
  Transmission Date: 20141002
  Serious: Yes (Hospitalization)
  Sender: FDA-Public Use
  Company Number: BR-ASTRAZENECA-2014SE19788

PATIENT
  Age: 59 Year
  Sex: Male
  Weight: 82 kg

DRUGS (5)
  1. ATACAND HCT [Suspect]
     Indication: HYPERTENSION
     Dosage: 16/12.5 MG, DAILY
     Route: 048
     Dates: start: 2013
  2. CLOPIN [Concomitant]
     Indication: ANTICOAGULANT THERAPY
     Dosage: DAILY
     Route: 048
     Dates: start: 201401, end: 201403
  3. NEBILET [Concomitant]
     Indication: HYPERTENSION
     Dosage: DAILY
     Route: 048
     Dates: start: 2013
  4. SOMALGIN [Concomitant]
     Dosage: DAILY
     Route: 048
     Dates: start: 2013
  5. CILOSTAZOL [Concomitant]
     Dosage: TWO TIMES A DAY
     Route: 048
     Dates: start: 2013

REACTIONS (1)
  - Coronary artery occlusion [Recovered/Resolved]
